FAERS Safety Report 7829614-3 (Version None)
Quarter: 2011Q4

REPORT INFORMATION
  Report Type: 
  Country: None (occurrence: None)
  Receive Date: 20111021
  Receipt Date: 20111018
  Transmission Date: 20120403
  Serious: Yes (Death, Other)
  Sender: FDA-Public Use
  Company Number: US-ASTRAZENECA-2007UW02680

PATIENT
  Age: 18611 Day
  Sex: Male
  Weight: 65.3 kg

DRUGS (22)
  1. WELCHOL [Concomitant]
  2. GABAPENTIN [Concomitant]
     Route: 048
     Dates: start: 20050125
  3. SEROQUEL [Suspect]
     Indication: SLEEP DISORDER
     Route: 048
     Dates: start: 20040101
  4. KALETRA [Concomitant]
     Dosage: 200/500 MG, 2 TABLETS TWO TIMES A DAY
     Route: 048
     Dates: start: 20060711
  5. ALBUTEROL [Concomitant]
     Indication: DYSPNOEA
     Dosage: ALBUTEROL 0.083% ATROVENT NEB QID PRN
     Dates: start: 20060925
  6. CYANOCOBALAMIN [Concomitant]
  7. PREDNISONE [Concomitant]
     Route: 048
     Dates: start: 20061017
  8. VALTREX [Concomitant]
     Route: 048
     Dates: start: 20050127
  9. COMBIVIR [Concomitant]
     Dosage: 150 MG/300 MG, BID
     Route: 048
     Dates: start: 20001127
  10. PROPOXYPHENE HYDROCHLORIDE [Concomitant]
     Dosage: 100/65 MG
  11. DAPSONE [Concomitant]
     Route: 048
     Dates: start: 20070122
  12. SIMVASTATIN [Concomitant]
  13. KALETRA [Concomitant]
     Dosage: 200/50
  14. COUMADIN [Concomitant]
     Dosage: 5 MG Q 6 PM, 3 MG AT NIGHT, 2.5 MG DAILY, 1 MG DAILY
     Route: 048
     Dates: start: 19990205
  15. ZOCOR [Concomitant]
     Route: 048
     Dates: start: 20060522
  16. ATROVENT [Concomitant]
     Indication: DYSPNOEA
     Dosage: ALBUTEROL 0.083% ATROVENT NEB QID PRN
     Dates: start: 20060925
  17. FLUOXETINE HYDROCHLORIDE [Concomitant]
     Dates: start: 20050322
  18. DOXYCYCLINE [Concomitant]
  19. SEROQUEL [Suspect]
     Route: 048
     Dates: start: 20060504
  20. TRAZODONE HYDROCHLORIDE [Concomitant]
  21. BENADRYL [Concomitant]
     Route: 048
     Dates: start: 20010307
  22. LEXAPRO [Concomitant]
     Route: 048
     Dates: start: 20060925

REACTIONS (10)
  - LUNG NEOPLASM MALIGNANT [None]
  - HIV INFECTION [None]
  - RENAL DISORDER [None]
  - HEPATITIS C [None]
  - HYPERGLYCAEMIA [None]
  - TYPE 2 DIABETES MELLITUS [None]
  - HEPATITIS B [None]
  - PULMONARY MASS [None]
  - DIABETES MELLITUS [None]
  - HYPERLIPIDAEMIA [None]
